FAERS Safety Report 15400037 (Version 9)
Quarter: 2020Q3

REPORT INFORMATION
  Report Type: Report from Study
  Country: US (occurrence: US)
  Receive Date: 20180919
  Receipt Date: 20200903
  Transmission Date: 20201102
  Serious: Yes (Life-Threatening, Hospitalization, Other)
  Sender: FDA-Public Use
  Company Number: US-ACADIA PHARMACEUTICALS INC.-ACA-2018-010241

PATIENT
  Age: 75 Year
  Sex: Male
  Weight: 91 kg

DRUGS (67)
  1. ZEOLITE [Concomitant]
     Indication: PRODUCT USED FOR UNKNOWN INDICATION
  2. ANDROGEL [Concomitant]
     Active Substance: TESTOSTERONE
     Indication: SKIN DISORDER
  3. ANDROGEL [Concomitant]
     Active Substance: TESTOSTERONE
     Indication: PROSTATOMEGALY
  4. 5 HTP [OXITRIPTAN] [Concomitant]
     Active Substance: OXITRIPTAN
     Indication: PRODUCT USED FOR UNKNOWN INDICATION
  5. SINEMET [Concomitant]
     Active Substance: CARBIDOPA\LEVODOPA
     Indication: PRODUCT USED FOR UNKNOWN INDICATION
  6. OMEGA 3 FISH OIL [FISH OIL] [Concomitant]
     Indication: SUPPLEMENTATION THERAPY
  7. SODIUM BICARBONATE. [Concomitant]
     Active Substance: SODIUM BICARBONATE
     Indication: HYPERSENSITIVITY
  8. LIDOCAINE. [Concomitant]
     Active Substance: LIDOCAINE
     Indication: DETOXIFICATION
  9. RENALIX [Concomitant]
     Indication: SUPPLEMENTATION THERAPY
  10. COD LIVER OIL [Concomitant]
     Active Substance: COD LIVER OIL
     Indication: PRODUCT USED FOR UNKNOWN INDICATION
  11. COCONUT OIL [Concomitant]
     Active Substance: COCONUT OIL
     Indication: PRODUCT USED FOR UNKNOWN INDICATION
  12. VITAMIN D [Concomitant]
     Active Substance: VITAMIN D NOS
     Indication: SUPPLEMENTATION THERAPY
     Route: 065
  13. LOVENOX [Concomitant]
     Active Substance: ENOXAPARIN SODIUM
     Indication: PRODUCT USED FOR UNKNOWN INDICATION
  14. TRULANCE [Concomitant]
     Active Substance: PLECANATIDE
     Indication: HALLUCINATION
  15. SEROQUEL [Concomitant]
     Active Substance: QUETIAPINE FUMARATE
     Indication: SLEEP DISORDER
  16. BIOTIN [Concomitant]
     Active Substance: BIOTIN
     Indication: PRODUCT USED FOR UNKNOWN INDICATION
  17. ZINC. [Concomitant]
     Active Substance: ZINC
     Indication: SUPPLEMENTATION THERAPY
  18. MIRALAX [Concomitant]
     Active Substance: POLYETHYLENE GLYCOL 3350
     Indication: CONSTIPATION
  19. FLUOCINONIDE. [Concomitant]
     Active Substance: FLUOCINONIDE
     Indication: DERMATITIS
  20. NUPLAZID [Suspect]
     Active Substance: PIMAVANSERIN TARTRATE
     Indication: PARKINSON^S DISEASE PSYCHOSIS
     Dosage: 34 MG, QD
     Route: 048
     Dates: start: 20180913
  21. NUPLAZID [Suspect]
     Active Substance: PIMAVANSERIN TARTRATE
     Dosage: CONTINUED WITH DOSE CHANGE
     Route: 048
  22. DUOPA [Suspect]
     Active Substance: CARBIDOPA\LEVODOPA
     Dosage: 4.63 MG/ML 20 MG/ML FOR 21 1/2 HRS PER DAY
  23. MSM [Concomitant]
     Active Substance: DIMETHYL SULFONE
     Indication: PRODUCT USED FOR UNKNOWN INDICATION
  24. DOPAMINE [Concomitant]
     Active Substance: DOPAMINE HYDROCHLORIDE
     Indication: PRODUCT USED FOR UNKNOWN INDICATION
  25. IPRATROPIUM BROMIDE. [Concomitant]
     Active Substance: IPRATROPIUM BROMIDE
     Indication: PRODUCT USED FOR UNKNOWN INDICATION
  26. NUPLAZID [Suspect]
     Active Substance: PIMAVANSERIN TARTRATE
     Indication: DELUSION
     Dosage: 34 MG, QD AT NIGHT
     Route: 048
     Dates: start: 20180904, end: 20180912
  27. ALOE [Concomitant]
     Active Substance: ALOE
     Indication: PRODUCT USED FOR UNKNOWN INDICATION
  28. EXELON [Concomitant]
     Active Substance: RIVASTIGMINE TARTRATE
     Indication: DEMENTIA
  29. SEROQUEL [Concomitant]
     Active Substance: QUETIAPINE FUMARATE
     Indication: PSYCHOTIC DISORDER
  30. PROLIA [Concomitant]
     Active Substance: DENOSUMAB
     Indication: OSTEOPOROSIS
  31. MIRALAX [Concomitant]
     Active Substance: POLYETHYLENE GLYCOL 3350
     Indication: INTESTINAL OBSTRUCTION
  32. MIRALAX [Concomitant]
     Active Substance: POLYETHYLENE GLYCOL 3350
     Indication: SUPPLEMENTATION THERAPY
  33. BENEFIBER [Concomitant]
     Active Substance: STARCH, WHEAT
     Indication: BOWEL PREPARATION
  34. PROTHROMBIN COMPLEX CONCENTRATE NOS [Concomitant]
     Active Substance: COAGULATION FACTOR IX HUMAN\COAGULATION FACTOR VII HUMAN\COAGULATION FACTOR X HUMAN\PROTHROMBIN
     Indication: DETOXIFICATION
  35. PS [Concomitant]
     Active Substance: MENTHOL
     Indication: PRODUCT USED FOR UNKNOWN INDICATION
     Dosage: 100
  36. GLUTATHIONE [Concomitant]
     Active Substance: GLUTATHIONE
     Indication: PRODUCT USED FOR UNKNOWN INDICATION
  37. PYRIDOSTIGMINE BROMIDE. [Concomitant]
     Active Substance: PYRIDOSTIGMINE BROMIDE
     Indication: PRODUCT USED FOR UNKNOWN INDICATION
  38. MELATONIN [Concomitant]
     Active Substance: MELATONIN
     Indication: INSOMNIA
  39. ALOELAX [Concomitant]
     Indication: SUPPLEMENTATION THERAPY
  40. DUOPA [Suspect]
     Active Substance: CARBIDOPA\LEVODOPA
     Dosage: 4.63 MG/ML 20 MG/ML FOR 21 1/2 HRS PER DAY
  41. SODIUM BICARBONATE. [Concomitant]
     Active Substance: SODIUM BICARBONATE
     Indication: PRODUCT USED FOR UNKNOWN INDICATION
     Route: 048
  42. ALBUTEROL. [Concomitant]
     Active Substance: ALBUTEROL
     Indication: PRODUCT USED FOR UNKNOWN INDICATION
  43. FINASTERIDE. [Concomitant]
     Active Substance: FINASTERIDE
     Indication: BENIGN PROSTATIC HYPERPLASIA
  44. GLUTATHIONE [Concomitant]
     Active Substance: GLUTATHIONE
     Indication: DETOXIFICATION
  45. PHOSPHATIDYLSERINE [Concomitant]
     Indication: COGNITIVE DISORDER
  46. MITOXANTRONE [Concomitant]
     Active Substance: MITOXANTRONE HYDROCHLORIDE
     Indication: PRODUCT USED FOR UNKNOWN INDICATION
  47. NUPLAZID [Suspect]
     Active Substance: PIMAVANSERIN TARTRATE
     Indication: HALLUCINATION
     Dosage: UNK
     Route: 065
     Dates: end: 201808
  48. DUOPA [Suspect]
     Active Substance: CARBIDOPA\LEVODOPA
     Indication: PARKINSON^S DISEASE
     Dosage: 4.63 MG/ML 20 MG/ML FOR 21 1/2 HRS PER DAY
     Dates: start: 20180320
  49. ZINC GLUCONATE [Concomitant]
     Active Substance: ZINC GLUCONATE
     Indication: PRODUCT USED FOR UNKNOWN INDICATION
  50. MITO [Concomitant]
     Indication: PRODUCT USED FOR UNKNOWN INDICATION
  51. VITAMIN E [Concomitant]
     Active Substance: .ALPHA.-TOCOPHEROL
     Indication: PRODUCT USED FOR UNKNOWN INDICATION
  52. VITAMIN B12 [Concomitant]
     Active Substance: CYANOCOBALAMIN
     Indication: PRODUCT USED FOR UNKNOWN INDICATION
     Route: 065
  53. ELIDEL [Concomitant]
     Active Substance: PIMECROLIMUS
     Indication: DERMATITIS
  54. D?MANNOSE [Concomitant]
     Indication: PROPHYLAXIS
  55. MILK OF MAGNESIA [Concomitant]
     Active Substance: MAGNESIUM HYDROXIDE
     Indication: SUPPLEMENTATION THERAPY
  56. D?MANNOSE [Concomitant]
     Indication: PRODUCT USED FOR UNKNOWN INDICATION
  57. TRULANCE [Concomitant]
     Active Substance: PLECANATIDE
     Indication: CONSTIPATION
  58. TRULANCE [Concomitant]
     Active Substance: PLECANATIDE
     Indication: BOWEL PREPARATION
  59. CLINDAMYCIN. [Concomitant]
     Active Substance: CLINDAMYCIN
     Indication: MILIARIA
  60. MULTIVITAMINS [VITAMINS NOS] [Concomitant]
     Active Substance: VITAMINS
     Indication: PRODUCT USED FOR UNKNOWN INDICATION
  61. VITAMIN B12 [Concomitant]
     Active Substance: CYANOCOBALAMIN
     Indication: SUPPLEMENTATION THERAPY
  62. MAGNESIUM SULFATE. [Concomitant]
     Active Substance: MAGNESIUM SULFATE
     Indication: SUPPLEMENTATION THERAPY
  63. ALOELAX [Concomitant]
     Indication: BOWEL PREPARATION
  64. D?MANNOSE [Concomitant]
     Indication: SUPPLEMENTATION THERAPY
  65. PROBIOTIC [BIFIDOBACTERIUM LACTIS] [Concomitant]
     Active Substance: BIFIDOBACTERIUM ANIMALIS LACTIS
     Indication: SUPPLEMENTATION THERAPY
  66. LOTRIMIN [Concomitant]
     Active Substance: CLOTRIMAZOLE
     Indication: FUNGAL INFECTION
  67. VITAMIN C [Concomitant]
     Active Substance: ASCORBIC ACID
     Indication: SUPPLEMENTATION THERAPY

REACTIONS (44)
  - Intestinal obstruction [Recovered/Resolved]
  - Sedation [Recovered/Resolved]
  - Psychotic disorder [Recovered/Resolved]
  - Abnormal behaviour [Recovered/Resolved]
  - Salivary hypersecretion [Unknown]
  - Drooling [Unknown]
  - Cognitive disorder [Recovering/Resolving]
  - Delirium [Unknown]
  - Dementia [Not Recovered/Not Resolved]
  - Cardiac arrest [Recovered/Resolved]
  - Diarrhoea [Recovered/Resolved]
  - Unresponsive to stimuli [Recovered/Resolved]
  - Oesophageal motility disorder [Recovered/Resolved]
  - Tooth abscess [Not Recovered/Not Resolved]
  - Crying [Unknown]
  - Stupor [Recovered/Resolved]
  - Mobility decreased [Unknown]
  - Social avoidant behaviour [Unknown]
  - Unresponsive to stimuli [Recovered/Resolved]
  - Device physical property issue [Unknown]
  - Decreased activity [Unknown]
  - Speech disorder [Recovered/Resolved]
  - Nonspecific reaction [Unknown]
  - Flat affect [Unknown]
  - Urine output decreased [Recovering/Resolving]
  - Skin discolouration [Recovered/Resolved]
  - Confusional state [Recovered/Resolved]
  - Salivary hypersecretion [Recovered/Resolved]
  - Lid sulcus deepened [Recovering/Resolving]
  - Skin disorder [Recovering/Resolving]
  - Hypersomnia [Recovering/Resolving]
  - Feeling cold [Recovered/Resolved]
  - Mental status changes [Recovered/Resolved]
  - Abdominal distension [Recovering/Resolving]
  - Consciousness fluctuating [Recovered/Resolved]
  - Swelling face [Not Recovered/Not Resolved]
  - Saliva altered [Recovered/Resolved]
  - Productive cough [Unknown]
  - Lethargy [Not Recovered/Not Resolved]
  - Cold sweat [Recovered/Resolved]
  - Productive cough [Recovered/Resolved]
  - Choking [Unknown]
  - Oxygen saturation decreased [Recovered/Resolved]
  - Hallucination [Recovered/Resolved]

NARRATIVE: CASE EVENT DATE: 2018
